FAERS Safety Report 11333604 (Version 1)
Quarter: 2015Q3

REPORT INFORMATION
  Report Type: Spontaneous
  Country: US (occurrence: US)
  Receive Date: 20150803
  Receipt Date: 20150803
  Transmission Date: 20151125
  Serious: Yes (Hospitalization, Other)
  Sender: FDA-Public Use
  Company Number: US-ELI_LILLY_AND_COMPANY-US200608003973

PATIENT
  Sex: Female
  Weight: 77.1 kg

DRUGS (3)
  1. ZIPRASIDONE. [Concomitant]
     Active Substance: ZIPRASIDONE
     Dates: start: 2004, end: 2004
  2. ZYPREXA [Suspect]
     Active Substance: OLANZAPINE
     Indication: DEPRESSION
     Dosage: 5 MG, 2/D
     Dates: start: 1996, end: 2005
  3. BUPROPION. [Concomitant]
     Active Substance: BUPROPION
     Dates: start: 2001, end: 2001

REACTIONS (4)
  - Diabetic coma [Recovering/Resolving]
  - Blood glucose increased [Unknown]
  - Diabetes mellitus [Not Recovered/Not Resolved]
  - Blood glucose increased [Not Recovered/Not Resolved]

NARRATIVE: CASE EVENT DATE: 1999
